FAERS Safety Report 9989654 (Version 1)
Quarter: 2013Q4

REPORT INFORMATION
  Report Type: Spontaneous
  Country: US (occurrence: None)
  Receive Date: 20131106
  Receipt Date: 20131106
  Transmission Date: 20140711
  Serious: Yes (Disabling, Other)
  Sender: FDA-Public Use
  Company Number: 1310-1251

PATIENT
  Age: 70 Year
  Sex: Male

DRUGS (1)
  1. EYLEA (AFLIBERCEPT) (INJECTION) (AFLIBERCEPT) [Suspect]
     Indication: AGE-RELATED MACULAR DEGENERATION
     Dosage: 2 MG, 1 IN 1 M, INTRAVITREAL
     Dates: start: 20120123, end: 20130903

REACTIONS (3)
  - Non-infectious endophthalmitis [None]
  - Blindness [None]
  - Intraocular pressure decreased [None]
